FAERS Safety Report 18544650 (Version 1)
Quarter: 2020Q4

REPORT INFORMATION
  Report Type: Spontaneous
  Country: US (occurrence: US)
  Receive Date: 20201125
  Receipt Date: 20201125
  Transmission Date: 20210114
  Serious: Yes (Other)
  Sender: FDA-Public Use
  Company Number: US-PFIZER INC-2020463670

PATIENT
  Sex: Female

DRUGS (1)
  1. CHANTIX [Suspect]
     Active Substance: VARENICLINE TARTRATE
     Indication: NERVOUS SYSTEM DISORDER
     Dosage: UNK

REACTIONS (3)
  - Off label use [Unknown]
  - Dystonia [Unknown]
  - Muscle twitching [Unknown]

NARRATIVE: CASE EVENT DATE: 2019
